FAERS Safety Report 5961806-0 (Version None)
Quarter: 2008Q4

REPORT INFORMATION
  Report Type: 
  Country: None (occurrence: None)
  Receive Date: 20081121
  Receipt Date: 20081113
  Transmission Date: 20090506
  Serious: Yes (Other)
  Sender: FDA-Public Use
  Company Number: US-ASTRAZENECA-2008UW25435

PATIENT
  Age: 79 Year
  Sex: Female
  Weight: 67.1 kg

DRUGS (4)
  1. NEXIUM [Suspect]
     Indication: GASTROOESOPHAGEAL REFLUX DISEASE
     Route: 048
     Dates: start: 20081001, end: 20081001
  2. GLUCOPHAGE [Concomitant]
  3. LIPITOR [Concomitant]
  4. METFORMIN HCL [Concomitant]

REACTIONS (4)
  - BLINDNESS [None]
  - BURNING SENSATION [None]
  - HYPERHIDROSIS [None]
  - PRESYNCOPE [None]
